FAERS Safety Report 5931887-9 (Version None)
Quarter: 2008Q4

REPORT INFORMATION
  Report Type: 
  Country: None (occurrence: None)
  Receive Date: 20081027
  Receipt Date: 20081015
  Transmission Date: 20090506
  Serious: Yes (Other)
  Sender: FDA-Public Use
  Company Number: CA-PFIZER INC-2008085508

PATIENT
  Sex: Male

DRUGS (7)
  1. CHAMPIX [Suspect]
     Indication: SMOKING CESSATION THERAPY
     Route: 048
     Dates: start: 20080929
  2. VITAMIN B-12 [Concomitant]
     Indication: RED BLOOD CELL COUNT DECREASED
     Dosage: TEXT:1 MG/ML
     Dates: start: 20080929
  3. ACTONEL [Concomitant]
     Indication: OSTEOPOROSIS
     Dosage: DAILY DOSE:35MG
     Dates: start: 20080610
  4. ENDOCET [Concomitant]
     Indication: PAIN
     Dates: start: 20080610
  5. LAXATIVES [Concomitant]
  6. COVERSYL PLUS [Concomitant]
     Indication: HYPERTENSION
     Dates: start: 20080610
  7. BOOST [Concomitant]
     Indication: MEDICAL DIET
     Dates: start: 20080728

REACTIONS (3)
  - FAECES DISCOLOURED [None]
  - INCORRECT DOSE ADMINISTERED [None]
  - SPUTUM DISCOLOURED [None]
